FAERS Safety Report 5369431-X (Version None)
Quarter: 2007Q2

REPORT INFORMATION
  Report Type: 
  Country: None (occurrence: None)
  Receive Date: 20070621
  Receipt Date: 20070615
  Transmission Date: 20071010
  Serious: Yes (Other)
  Sender: FDA-Public Use
  Company Number: WWISSUE-94

PATIENT
  Sex: Female

DRUGS (2)
  1. CEFAZOLIN [Suspect]
     Indication: PROPHYLAXIS
     Dosage: 1G, ONCE, INTRAVENOUS
     Route: 042
     Dates: start: 20070612
  2. EPOFEN (EPOETIN ALFA) [Concomitant]

REACTIONS (4)
  - HYPOTENSION [None]
  - PRURITUS [None]
  - TACHYCARDIA [None]
  - VOMITING [None]
